FAERS Safety Report 26138436 (Version 1)
Quarter: 2025Q4

REPORT INFORMATION
  Report Type: Spontaneous
  Country: US (occurrence: US)
  Receive Date: 20251210
  Receipt Date: 20251210
  Transmission Date: 20260118
  Serious: No
  Sender: JOHNSON AND JOHNSON
  Company Number: US-JNJFOC-20251172286

PATIENT
  Age: 69 Year
  Sex: Male

DRUGS (2)
  1. RYBREVANT [Suspect]
     Active Substance: AMIVANTAMAB-VMJW
     Indication: Non-small cell lung cancer metastatic
     Route: 042
     Dates: start: 20251125, end: 20251125
  2. LAZCLUZE [Suspect]
     Active Substance: LAZERTINIB
     Indication: Non-small cell lung cancer metastatic

REACTIONS (5)
  - Infusion related reaction [Unknown]
  - Feeling hot [Unknown]
  - Dyspnoea [Unknown]
  - Flushing [Unknown]
  - Urticaria [Recovering/Resolving]
